FAERS Safety Report 4507605-8 (Version None)
Quarter: 2004Q4

REPORT INFORMATION
  Report Type: 
  Country: None (occurrence: None)
  Receive Date: 20040928
  Receipt Date: 20040819
  Transmission Date: 20050328
  Serious: Yes (Hospitalization)
  Sender: FDA-Public Use
  Company Number: 04P-163-0271258-00

PATIENT
  Age: 66 Year
  Sex: Male

DRUGS (28)
  1. HUMIRA [Suspect]
     Indication: RHEUMATOID ARTHRITIS
     Dosage: 1 IN 2 WK, SUBCUTANEOUS
     Route: 058
     Dates: start: 20030421, end: 20030721
  2. HUMIRA [Suspect]
     Indication: RHEUMATOID ARTHRITIS
     Dosage: 1 IN 2 WK, SUBCUTANEOUS
     Route: 058
     Dates: start: 20030723, end: 20030901
  3. LEFLUNOMIDE [Suspect]
     Dosage: 20 MG, 1 IN 1 D
     Dates: start: 19990429, end: 20030818
  4. GLUCOSE [Concomitant]
  5. METOLAZONE [Concomitant]
  6. METOPROLOL [Concomitant]
  7. NYSTATIN [Concomitant]
  8. POTASSIUM CHLORIDE [Concomitant]
  9. RABEPRAZOLE SODIUM [Concomitant]
  10. TAMSULOSIN [Concomitant]
  11. WARFARIN [Concomitant]
  12. SALBUTAMOL [Concomitant]
  13. DM10/GUAIFENESIN (TUSSIN DM) [Concomitant]
  14. DOCUSATE [Concomitant]
  15. FLUNISOLIDE [Concomitant]
  16. FUROSEMIDE [Concomitant]
  17. HUMULIN 70/30 [Concomitant]
  18. IPRATROPIUM BROMIDE [Concomitant]
  19. KETOCONAZOLE [Concomitant]
  20. DIGOXIN [Concomitant]
  21. NICOTINIC ACID [Concomitant]
  22. SIMVASTATIN [Concomitant]
  23. SPIRONOLACTONE [Concomitant]
  24. ALENDRONATE SODIUM [Concomitant]
  25. TOCOPHEROL CONCENTRATE CAP [Concomitant]
  26. CALCIUM CARBONATE [Concomitant]
  27. FOLIC ACID [Concomitant]
  28. PREDNISONE [Concomitant]

REACTIONS (3)
  - FURUNCLE [None]
  - INTERNATIONAL NORMALISED RATIO INCREASED [None]
  - OSTEOMYELITIS ACUTE [None]
